FAERS Safety Report 5725101-7 (Version None)
Quarter: 2008Q2

REPORT INFORMATION
  Report Type: 
  Country: None (occurrence: None)
  Receive Date: 20080501
  Receipt Date: 20080422
  Transmission Date: 20081010
  Serious: Yes (Hospitalization)
  Sender: FDA-Public Use
  Company Number: APP200800322

PATIENT
  Age: 52 Year
  Sex: Female
  Weight: 82.1011 kg

DRUGS (1)
  1. HEPARIN SODIUM INJECTION [Suspect]
     Indication: ANTICOAGULANT THERAPY
     Dosage: 1000 USP UNITS, ONCE, INTRAVENOUS
     Route: 042
     Dates: start: 20080402, end: 20080402

REACTIONS (9)
  - BLOOD PRESSURE DECREASED [None]
  - DIZZINESS [None]
  - DYSPNOEA [None]
  - ERYTHEMA [None]
  - HEADACHE [None]
  - HYPOAESTHESIA [None]
  - ORAL PAIN [None]
  - RASH [None]
  - UNRESPONSIVE TO STIMULI [None]
